FAERS Safety Report 10360138 (Version 1)
Quarter: 2014Q3

REPORT INFORMATION
  Report Type: Spontaneous
  Country: US (occurrence: None)
  Receive Date: 20140801
  Receipt Date: 20140801
  Transmission Date: 20150326
  Serious: Yes (Other)
  Sender: FDA-Public Use
  Company Number: None

PATIENT
  Age: 83 Year
  Sex: Female
  Weight: 59 kg

DRUGS (12)
  1. PANTOPRAZOLE [Concomitant]
     Active Substance: PANTOPRAZOLE SODIUM
  2. FENOFIBRATE. [Concomitant]
     Active Substance: FENOFIBRATE
  3. DICLOFENAC 75 MG [Suspect]
     Active Substance: DICLOFENAC
     Indication: ARTHRALGIA
     Dosage: APPROXIMATELY 1 WEEK, 75 MG, BID, ORAL
     Route: 048
  4. METOPROLOL [Concomitant]
     Active Substance: METOPROLOL
  5. LIDACAINE PATCH [Concomitant]
  6. ASPIRIN 325 MG [Suspect]
     Active Substance: ASPIRIN
     Indication: CARDIAC DISORDER
     Dosage: 1 TAB, QD, ORAL
     Route: 048
  7. AMLODIPINE [Concomitant]
     Active Substance: AMLODIPINE BESYLATE
  8. AMOXICILLIN/CLAVULANATE [Concomitant]
     Active Substance: AMOXICILLIN\CLAVULANATE POTASSIUM
  9. ENOXAPARIN [Concomitant]
     Active Substance: ENOXAPARIN
  10. INSULIN LISPRO SLIDING SCALE INSULIN [Concomitant]
  11. LOSARTAN [Concomitant]
     Active Substance: LOSARTAN
  12. INSULIN DETERMIR [Concomitant]

REACTIONS (8)
  - Asthenia [None]
  - Hypotension [None]
  - Gastric ulcer [None]
  - Haematocrit decreased [None]
  - Duodenal ulcer [None]
  - Back pain [None]
  - Haematemesis [None]
  - Haemoglobin decreased [None]

NARRATIVE: CASE EVENT DATE: 20140128
